FAERS Safety Report 14701078 (Version 1)
Quarter: 2018Q1

REPORT INFORMATION
  Report Type: Spontaneous
  Country: CR (occurrence: CR)
  Receive Date: 20180330
  Receipt Date: 20180330
  Transmission Date: 20180509
  Serious: Yes (Death)
  Sender: FDA-Public Use
  Company Number: CR-JNJFOC-20180340345

PATIENT
  Sex: Female
  Weight: 57 kg

DRUGS (3)
  1. DARATUMUMAB [Suspect]
     Active Substance: DARATUMUMAB
     Indication: PRODUCT USED FOR UNKNOWN INDICATION
     Route: 042
     Dates: start: 20180316
  2. LENALIDOMIDE [Concomitant]
     Active Substance: LENALIDOMIDE
  3. DEXAMETHASONE. [Concomitant]
     Active Substance: DEXAMETHASONE
     Dosage: 20 MG DAY 1 AND 2

REACTIONS (3)
  - Condition aggravated [Unknown]
  - Aplasia [Unknown]
  - Death [Fatal]

NARRATIVE: CASE EVENT DATE: 201803
